FAERS Safety Report 7379054-9 (Version None)
Quarter: 2011Q1

REPORT INFORMATION
  Report Type: 
  Country: None (occurrence: None)
  Receive Date: 20110328
  Receipt Date: 20110324
  Transmission Date: 20110831
  Serious: Yes (Hospitalization, Other)
  Sender: FDA-Public Use
  Company Number: US-AMGEN-USASP2011016373

PATIENT
  Sex: Male

DRUGS (2)
  1. NPLATE [Suspect]
     Indication: THROMBOCYTOPENIA
     Dates: start: 20101006, end: 20101227
  2. WINRHO [Concomitant]
     Dosage: UNK
     Dates: start: 20100924

REACTIONS (2)
  - PLATELET COUNT DECREASED [None]
  - HIP ARTHROPLASTY [None]
